FAERS Safety Report 16069814 (Version 1)
Quarter: 2019Q1

REPORT INFORMATION
  Report Type: Spontaneous
  Country: US (occurrence: US)
  Receive Date: 20190314
  Receipt Date: 20190314
  Transmission Date: 20190418
  Serious: Yes (Other)
  Sender: FDA-Public Use
  Company Number: US-PFIZER INC-2019098717

PATIENT
  Age: 82 Year
  Sex: Female

DRUGS (1)
  1. LATANOPROST. [Suspect]
     Active Substance: LATANOPROST
     Indication: GLAUCOMA
     Dosage: UNK
     Route: 047

REACTIONS (10)
  - Neoplasm progression [Unknown]
  - Fall [Unknown]
  - Headache [Unknown]
  - Blindness [Unknown]
  - Anxiety [Unknown]
  - Cataract [Unknown]
  - Metastases to breast [Unknown]
  - Metastases to neck [Unknown]
  - Metastases to lymph nodes [Unknown]
  - Blindness unilateral [Unknown]

NARRATIVE: CASE EVENT DATE: 2019
